FAERS Safety Report 9506955 (Version 1)
Quarter: 2013Q3

REPORT INFORMATION
  Report Type: Spontaneous
  Country: US (occurrence: None)
  Receive Date: 20130905
  Receipt Date: 20130905
  Transmission Date: 20140515
  Serious: Yes (Life-Threatening, Hospitalization)
  Sender: FDA-Public Use
  Company Number: None

PATIENT
  Age: 67 Year
  Sex: Male
  Weight: 65.77 kg

DRUGS (1)
  1. XARELTO 20MG JANSSEN [Suspect]
     Indication: THROMBOSIS PROPHYLAXIS
     Dosage: 20MG 1 PER DAY ORAL?? DAYS
     Route: 048
     Dates: start: 201212, end: 201302

REACTIONS (1)
  - Bone marrow disorder [None]
